FAERS Safety Report 9122900 (Version 1)
Quarter: 2013Q1

REPORT INFORMATION
  Report Type: Spontaneous
  Country: US (occurrence: US)
  Receive Date: 20130227
  Receipt Date: 20130227
  Transmission Date: 20140127
  Serious: No
  Sender: FDA-Public Use
  Company Number: US-GLAXOSMITHKLINE-A0980796A

PATIENT
  Age: 57 Year
  Sex: Female
  Weight: 82.7 kg

DRUGS (1)
  1. VALTREX [Suspect]
     Indication: VULVOVAGINAL PAIN
     Dosage: 500MG PER DAY
     Route: 048

REACTIONS (1)
  - Therapeutic response unexpected [Unknown]
